FAERS Safety Report 7254110-4 (Version None)
Quarter: 2011Q1

REPORT INFORMATION
  Report Type: 
  Country: None (occurrence: None)
  Receive Date: 20110129
  Receipt Date: 20100322
  Transmission Date: 20110831
  Serious: Yes (Hospitalization)
  Sender: FDA-Public Use
  Company Number: US-ABBOTT-10P-163-0625525-00

PATIENT
  Sex: Female
  Weight: 45 kg

DRUGS (2)
  1. HUMIRA [Suspect]
     Indication: JUVENILE ARTHRITIS
     Route: 058
     Dates: start: 20090701, end: 20091101
  2. METHOTREXATE [Concomitant]
     Indication: JUVENILE ARTHRITIS
     Dates: start: 20080701, end: 20091101

REACTIONS (3)
  - SYSTEMIC MYCOSIS [None]
  - WAIST CIRCUMFERENCE INCREASED [None]
  - CELLULITIS [None]
